FAERS Safety Report 13539997 (Version 3)
Quarter: 2017Q3

REPORT INFORMATION
  Report Type: Spontaneous
  Country: JP (occurrence: JP)
  Receive Date: 20170512
  Receipt Date: 20170925
  Transmission Date: 20171127
  Serious: Yes (Death, Hospitalization, Other)
  Sender: FDA-Public Use
  Company Number: JP-GLAXOSMITHKLINE-JP2017JPN070112

PATIENT
  Age: 34 Year
  Sex: Male

DRUGS (3)
  1. BOSENTAN HYDRATE [Concomitant]
     Dosage: UNK
  2. SILDENAFIL CITRATE. [Concomitant]
     Active Substance: SILDENAFIL CITRATE
     Dosage: UNK
  3. FLOLAN [Suspect]
     Active Substance: EPOPROSTENOL SODIUM
     Indication: PULMONARY ARTERIAL HYPERTENSION
     Dosage: UNK
     Route: 042
     Dates: start: 2011

REACTIONS (14)
  - Right ventricular failure [Fatal]
  - Oedema [Unknown]
  - Weight decreased [Unknown]
  - Ascites [Unknown]
  - Platelet count decreased [Unknown]
  - Dyspnoea [Unknown]
  - Cardiac failure congestive [Not Recovered/Not Resolved]
  - Renal failure [Unknown]
  - Haemorrhagic diathesis [Unknown]
  - Diarrhoea [Unknown]
  - Pulmonary arterial hypertension [Unknown]
  - Decreased appetite [Unknown]
  - Condition aggravated [Unknown]
  - Hypoalbuminaemia [Unknown]
